FAERS Safety Report 9406187 (Version 1)
Quarter: 2013Q3

REPORT INFORMATION
  Report Type: Report from Study
  Country: US (occurrence: US)
  Receive Date: 20130717
  Receipt Date: 20130717
  Transmission Date: 20140515
  Serious: Yes (Hospitalization, Other)
  Sender: FDA-Public Use
  Company Number: US-ABBOTT-13P-163-1117361-00

PATIENT
  Age: 60 Year
  Sex: Female
  Weight: 54.48 kg

DRUGS (2)
  1. HUMIRA [Suspect]
     Indication: RHEUMATOID ARTHRITIS
     Route: 058
     Dates: start: 2007, end: 201303
  2. HUMIRA [Suspect]
     Route: 058
     Dates: start: 20130425, end: 20130425

REACTIONS (10)
  - Fall [Recovered/Resolved]
  - Post procedural complication [Unknown]
  - White blood cell count increased [Unknown]
  - Tibia fracture [Recovered/Resolved]
  - Fibula fracture [Recovered/Resolved]
  - Vomiting [Recovered/Resolved]
  - Appendicitis perforated [Recovered/Resolved]
  - Sepsis [Recovering/Resolving]
  - Abdominal abscess [Recovering/Resolving]
  - Local swelling [Unknown]
